FAERS Safety Report 9355810 (Version 3)
Quarter: 2014Q1

REPORT INFORMATION
  Report Type: Report from Study
  Country: JP (occurrence: JP)
  Receive Date: 20130619
  Receipt Date: 20140122
  Transmission Date: 20141002
  Serious: Yes (Hospitalization)
  Sender: FDA-Public Use
  Company Number: JP-JNJFOC-20130610050

PATIENT
  Age: 72 Year
  Sex: Female
  Weight: 48 kg

DRUGS (11)
  1. SIMPONI [Suspect]
     Indication: RHEUMATOID ARTHRITIS
     Route: 058
     Dates: start: 20111220
  2. PREDONINE [Suspect]
     Indication: RHEUMATOID ARTHRITIS
     Route: 048
     Dates: start: 20091001
  3. HUSCODE [Concomitant]
     Indication: INTERSTITIAL LUNG DISEASE
     Route: 048
  4. TACROLIMUS HYDRATE [Concomitant]
     Indication: RHEUMATOID ARTHRITIS
  5. CELECOX [Concomitant]
     Indication: RHEUMATOID ARTHRITIS
     Route: 048
  6. BONOTEO [Concomitant]
     Indication: OSTEOPOROSIS
     Route: 048
  7. MUCOSOLVAN [Concomitant]
     Indication: INTERSTITIAL LUNG DISEASE
     Route: 048
  8. AMLODIPINE [Concomitant]
     Indication: HYPERTENSION
     Route: 048
  9. POTASSIUM-ASPARTATE [Concomitant]
     Indication: HYPOKALAEMIA
  10. MYSLEE [Concomitant]
     Indication: INSOMNIA
     Route: 048
  11. BAYASPIRIN [Concomitant]
     Route: 048

REACTIONS (2)
  - Sepsis [Recovered/Resolved]
  - Urinary tract infection [Recovered/Resolved]
